FAERS Safety Report 10553234 (Version 2)
Quarter: 2016Q2

REPORT INFORMATION
  Report Type: Spontaneous
  Country: FR (occurrence: FR)
  Receive Date: 20141030
  Receipt Date: 20160517
  Transmission Date: 20160815
  Serious: Yes (Other)
  Sender: FDA-Public Use
  Company Number: FR-ACCORD-026657

PATIENT
  Age: 62 Year
  Sex: Male

DRUGS (7)
  1. FLUOROURACILE ACCORD [Suspect]
     Active Substance: FLUOROURACIL
     Indication: PANCREATIC CARCINOMA METASTATIC
     Dosage: 2400 MG/M2 PER COURSE A DAY
     Route: 042
     Dates: start: 20131119, end: 20140402
  2. OXALIPLATINE ACCORD [Suspect]
     Active Substance: OXALIPLATIN
     Indication: PANCREATIC CARCINOMA METASTATIC
     Dosage: 85 MG/M2 PER COURSE PER DAY
     Route: 042
     Dates: start: 20131119, end: 20140402
  3. ALFUZOSIN [Concomitant]
     Active Substance: ALFUZOSIN
  4. NEORECORMON [Suspect]
     Active Substance: ERYTHROPOIETIN
     Indication: ANAEMIA
     Dates: start: 201402
  5. ASPIRINE [Concomitant]
     Active Substance: ASPIRIN
  6. SOMATULINE AUTOGEL [Concomitant]
     Active Substance: LANREOTIDE ACETATE
  7. AMLODIPINE [Concomitant]
     Active Substance: AMLODIPINE BESYLATE

REACTIONS (8)
  - Amnesia [Not Recovered/Not Resolved]
  - Pruritus [Recovered/Resolved]
  - Optic neuropathy [Not Recovered/Not Resolved]
  - Disturbance in attention [Not Recovered/Not Resolved]
  - Off label use [Unknown]
  - Hypotension [Recovered/Resolved]
  - Palmar erythema [Recovered/Resolved]
  - Deafness [Not Recovered/Not Resolved]

NARRATIVE: CASE EVENT DATE: 20140402
